FAERS Safety Report 7273999-6 (Version None)
Quarter: 2011Q1

REPORT INFORMATION
  Report Type: 
  Country: None (occurrence: None)
  Receive Date: 20110203
  Receipt Date: 20110131
  Transmission Date: 20110831
  Serious: Yes (Other)
  Sender: FDA-Public Use
  Company Number: GB-PFIZER INC-2011023296

PATIENT
  Sex: Male

DRUGS (2)
  1. XALATAN [Suspect]
  2. COSOPT [Concomitant]

REACTIONS (1)
  - INTRAOCULAR PRESSURE INCREASED [None]
